FAERS Safety Report 9846499 (Version 1)
Quarter: 2014Q1

REPORT INFORMATION
  Report Type: Spontaneous
  Country: US (occurrence: None)
  Receive Date: 20140122
  Receipt Date: 20140122
  Transmission Date: 20141002
  Serious: Yes (Other)
  Sender: FDA-Public Use
  Company Number: 2014SA004765

PATIENT
  Age: 65 Year
  Sex: Female

DRUGS (1)
  1. CAPSAICIN [Suspect]
     Indication: ARTHRITIS
     Dates: start: 20140108

REACTIONS (2)
  - Application site pain [None]
  - Drug ineffective [None]
